FAERS Safety Report 4800606-1 (Version None)
Quarter: 2005Q4

REPORT INFORMATION
  Report Type: 
  Country: None (occurrence: None)
  Receive Date: 20051013
  Receipt Date: 20051013
  Transmission Date: 20060501
  Serious: Yes (Death)
  Sender: FDA-Public Use
  Company Number: None

PATIENT
  Age: 50 Year
  Sex: Male
  Weight: 89 kg

DRUGS (1)
  1. ALEMBUZUMAB 30 MG [Suspect]
     Indication: IMMUNOSUPPRESSION
     Dates: start: 20050617, end: 20050706

REACTIONS (1)
  - WEST NILE VIRAL INFECTION [None]
